FAERS Safety Report 16907782 (Version 1)
Quarter: 2019Q4

REPORT INFORMATION
  Report Type: Spontaneous
  Country: US (occurrence: US)
  Receive Date: 20191010
  Receipt Date: 20191010
  Transmission Date: 20200122
  Serious: Yes (Life-Threatening, Hospitalization, Disabling, Other)
  Sender: FDA-Public Use
  Company Number: None

PATIENT
  Age: 33 Year
  Sex: Female
  Weight: 88.45 kg

DRUGS (11)
  1. BETA BLOCKER [Concomitant]
     Active Substance: UNSPECIFIED INGREDIENT
  2. ANTI-INFLAMMATORY DIET [Concomitant]
  3. MORPHINE [Concomitant]
     Active Substance: MORPHINE
  4. VITAMIN D [Concomitant]
     Active Substance: VITAMIN D NOS
  5. GABAPENTIN. [Concomitant]
     Active Substance: GABAPENTIN
  6. OXYCONTIN [Concomitant]
     Active Substance: OXYCODONE HYDROCHLORIDE
  7. MAGNESIUM CHELATE [Concomitant]
     Active Substance: MAGNESIUM
  8. MELATONIN [Concomitant]
     Active Substance: MELATONIN
  9. GINGER. [Concomitant]
     Active Substance: GINGER
  10. LEVAQUIN [Suspect]
     Active Substance: LEVOFLOXACIN
     Route: 048
     Dates: start: 20080101, end: 20090530
  11. CURCUMIN [Concomitant]
     Active Substance: CURCUMIN

REACTIONS (13)
  - Neuropathy peripheral [None]
  - Weight decreased [None]
  - Colectomy [None]
  - Irritable bowel syndrome [None]
  - Hypoaesthesia [None]
  - Fibromyalgia [None]
  - Spinal disorder [None]
  - Bedridden [None]
  - Rheumatoid arthritis [None]
  - Gastrointestinal ulcer perforation [None]
  - Secretion discharge [None]
  - Quality of life decreased [None]
  - Disease complication [None]
